FAERS Safety Report 4872702-4 (Version None)
Quarter: 2006Q1

REPORT INFORMATION
  Report Type: 
  Country: None (occurrence: None)
  Receive Date: 20060103
  Receipt Date: 20051221
  Transmission Date: 20060701
  Serious: Yes (Hospitalization, Other)
  Sender: FDA-Public Use
  Company Number: US 0509122336

PATIENT
  Age: 46 Year
  Sex: Female
  Weight: 85.5 kg

DRUGS (2)
  1. ZYPREXA [Suspect]
     Dosage: SEE IMAGE, ORAL
     Route: 048
     Dates: start: 20000919, end: 20001106
  2. ZYPREXA [Suspect]
     Dosage: SEE IMAGE, ORAL
     Route: 048
     Dates: start: 20001106, end: 20010105

REACTIONS (10)
  - BLOOD CHOLESTEROL INCREASED [None]
  - BLOOD TRIGLYCERIDES INCREASED [None]
  - CHOLELITHIASIS [None]
  - DIABETES MELLITUS [None]
  - GLYCOSYLATED HAEMOGLOBIN INCREASED [None]
  - HIGH DENSITY LIPOPROTEIN DECREASED [None]
  - LOW DENSITY LIPOPROTEIN INCREASED [None]
  - PANCREATITIS [None]
  - SKIN DISORDER [None]
  - STAPHYLOCOCCAL INFECTION [None]
